FAERS Safety Report 7764539-3 (Version None)
Quarter: 2011Q3

REPORT INFORMATION
  Report Type: 
  Country: None (occurrence: None)
  Receive Date: 20110921
  Receipt Date: 20110919
  Transmission Date: 20111222
  Serious: Yes (Life-Threatening)
  Sender: FDA-Public Use
  Company Number: IT-PFIZER INC-2011221481

PATIENT
  Age: 41 Year
  Sex: Male

DRUGS (1)
  1. PIPERACILLIN AND TAZOBACTAM [Suspect]
     Indication: PNEUMONIA
     Dosage: 4.5 G, 1X/DAY
     Dates: start: 20110908, end: 20110908

REACTIONS (1)
  - ACUTE RESPIRATORY FAILURE [None]
